FAERS Safety Report 6734180-X (Version None)
Quarter: 2010Q2

REPORT INFORMATION
  Report Type: 
  Country: None (occurrence: None)
  Receive Date: 20100520
  Receipt Date: 20100510
  Transmission Date: 20101027
  Serious: Yes (Hospitalization)
  Sender: FDA-Public Use
  Company Number: GXKR2010DE03806

PATIENT
  Sex: Male
  Weight: 71 kg

DRUGS (2)
  1. OMEP (NGX) [Suspect]
     Indication: PROPHYLAXIS
     Dosage: 20 MG, QD
     Route: 048
     Dates: end: 20100227
  2. RANITIDINE HCL [Suspect]
     Dosage: 300 MG, QD
     Route: 048
     Dates: start: 20100303, end: 20100318

REACTIONS (1)
  - URTICARIA [None]
